FAERS Safety Report 10155358 (Version 1)
Quarter: 2014Q2

REPORT INFORMATION
  Report Type: Spontaneous
  Country: GB (occurrence: GB)
  Receive Date: 20140506
  Receipt Date: 20140506
  Transmission Date: 20141212
  Serious: Yes (Other)
  Sender: FDA-Public Use
  Company Number: GB-PFIZER INC-2014122267

PATIENT
  Age: 9 Year
  Sex: Female
  Weight: 31.6 kg

DRUGS (11)
  1. LINEZOLID [Suspect]
     Indication: MYCOBACTERIUM ABSCESSUS INFECTION
     Dosage: 300 MG, 3X/DAY
     Route: 042
     Dates: start: 20140214, end: 20140220
  2. CEFOXITIN [Suspect]
     Indication: MYCOBACTERIUM ABSCESSUS INFECTION
     Dosage: UNK
     Route: 042
     Dates: start: 20140214, end: 20140220
  3. LOSEC [Concomitant]
     Dosage: 20 MG, 1X/DAY
  4. MOVICOL [Concomitant]
     Dosage: 1 DF, 1X/DAY
  5. CREON [Concomitant]
     Dosage: UNK, FOUR TO FIVE WITH MEALS, ONE TO TWO WITH SNACKS.
  6. INSULIN [Concomitant]
     Dosage: UNK, AS DIRECTED.
  7. FLUCLOXACILLIN [Concomitant]
     Dosage: 250 MG, 2X/DAY
  8. VITAMIN E [Concomitant]
     Dosage: 2 DF, 1X/DAY
  9. THYROXINE [Concomitant]
     Dosage: UNK
  10. IVACAFTOR [Concomitant]
     Dosage: 150 MG, 1X/DAY
  11. MULTIVITAMINS [Concomitant]
     Dosage: 2 DF, 1X/DAY

REACTIONS (3)
  - Neutropenia [Recovered/Resolved]
  - Liver function test abnormal [Recovered/Resolved]
  - Erythema multiforme [Recovering/Resolving]
